FAERS Safety Report 8556774-1 (Version None)
Quarter: 2012Q3

REPORT INFORMATION
  Report Type: 
  Country: None (occurrence: None)
  Receive Date: 20120801
  Receipt Date: 20120724
  Transmission Date: 20120928
  Serious: Yes (Other)
  Sender: FDA-Public Use
  Company Number: PK-ROXANE LABORATORIES, INC.-2012-RO-01587RO

PATIENT
  Age: 25 Year
  Sex: Male

DRUGS (6)
  1. CYCLOSPORINE [Suspect]
     Indication: RENAL TRANSPLANT
  2. PEGINTERFERON ALFA-2B [Suspect]
     Indication: HEPATITIS CHOLESTATIC
  3. RIBAVIRIN [Suspect]
     Indication: HEPATITIS CHOLESTATIC
     Dosage: 400 MG
  4. AZATHIOPRINE [Suspect]
     Indication: RENAL TRANSPLANT
  5. URSODIOL [Suspect]
     Indication: LIVER FUNCTION TEST ABNORMAL
  6. PREDNISOLONE [Suspect]
     Indication: RENAL TRANSPLANT

REACTIONS (7)
  - CHOLESTASIS [None]
  - PANCYTOPENIA [None]
  - VARICES OESOPHAGEAL [None]
  - GRAFT DYSFUNCTION [None]
  - URINARY TRACT INFECTION [None]
  - DIARRHOEA [None]
  - HEPATITIS C [None]
